FAERS Safety Report 9524717 (Version 1)
Quarter: 2013Q3

REPORT INFORMATION
  Report Type: Spontaneous
  Country: FR (occurrence: FR)
  Receive Date: 20130916
  Receipt Date: 20130916
  Transmission Date: 20140515
  Serious: Yes (Other)
  Sender: FDA-Public Use
  Company Number: PHHY2013FR101021

PATIENT
  Age: 82 Year
  Sex: Female

DRUGS (7)
  1. ACLASTA [Suspect]
     Indication: OSTEOPOROSIS
     Dosage: 5 MG, ONCE PER YEAR
     Route: 042
     Dates: start: 20110316
  2. PREDNISONE [Suspect]
     Indication: RHEUMATOID ARTHRITIS
     Dosage: 5 MG, QD
     Route: 048
     Dates: start: 20051025
  3. METHOTREXATE [Suspect]
     Indication: RHEUMATOID ARTHRITIS
     Dosage: 17.5 MG, QW
     Route: 048
     Dates: start: 20031126
  4. NISIS [Concomitant]
     Dosage: UNK
  5. LIPANOR [Concomitant]
     Dosage: UNK
  6. DOLIPRANE [Concomitant]
     Dosage: UNK
  7. METOCALCIUM [Concomitant]
     Dosage: UNK

REACTIONS (1)
  - Bone fissure [Not Recovered/Not Resolved]
